FAERS Safety Report 8350871 (Version 6)
Quarter: 2014Q1

REPORT INFORMATION
  Report Type: Report from Study
  Country: US (occurrence: US)
  Receive Date: 20120124
  Receipt Date: 20140305
  Transmission Date: 20141002
  Serious: Yes (Other)
  Sender: FDA-Public Use
  Company Number: US-JNJFOC-20120105701

PATIENT
  Age: 82 Year
  Sex: Male
  Weight: 73 kg

DRUGS (12)
  1. ABIRATERONE ACETATE [Suspect]
     Indication: PROSTATE CANCER METASTATIC
     Route: 048
     Dates: start: 20111114
  2. ABIRATERONE ACETATE [Suspect]
     Indication: PROSTATE CANCER METASTATIC
     Route: 048
     Dates: start: 20120112
  3. PREDNISONE [Suspect]
     Indication: PROSTATE CANCER METASTATIC
     Route: 048
     Dates: start: 20120112
  4. PREDNISONE [Suspect]
     Indication: PROSTATE CANCER METASTATIC
     Route: 048
     Dates: start: 20111114
  5. LISINOPRIL [Concomitant]
     Indication: HYPERTENSION
     Route: 065
     Dates: start: 2009
  6. METOPROLOL [Concomitant]
     Indication: HYPERTENSION
     Route: 065
     Dates: start: 2009, end: 20120306
  7. ASPIRIN [Concomitant]
     Indication: CARDIOVASCULAR EVENT PROPHYLAXIS
     Route: 065
     Dates: start: 2009
  8. TYLENOL ARTHRITIS [Concomitant]
     Indication: OSTEOARTHRITIS
     Route: 065
     Dates: start: 2009
  9. LUPRON DEPOT [Concomitant]
     Route: 030
     Dates: start: 20100511
  10. TRELSTAR [Concomitant]
     Route: 030
     Dates: start: 20110510
  11. TRELSTAR [Concomitant]
     Route: 030
     Dates: start: 20100208
  12. TRELSTAR [Concomitant]
     Route: 030

REACTIONS (1)
  - Hepatic enzyme increased [Recovered/Resolved]
